FAERS Safety Report 11709205 (Version 1)
Quarter: 2015Q4

REPORT INFORMATION
  Report Type: Spontaneous
  Country: US (occurrence: US)
  Receive Date: 20151104
  Receipt Date: 20151104
  Transmission Date: 20160304
  Serious: No
  Sender: FDA-Public Use
  Company Number: US-ELI_LILLY_AND_COMPANY-US201107005428

PATIENT
  Sex: Female

DRUGS (2)
  1. FORTEO [Suspect]
     Active Substance: TERIPARATIDE
     Dosage: UNK, QD
  2. FORTEO [Suspect]
     Active Substance: TERIPARATIDE
     Indication: OSTEOPOROSIS
     Dosage: UNK UNK, QD
     Route: 065
     Dates: start: 20110707

REACTIONS (7)
  - Abdominal pain upper [Unknown]
  - Intentional product misuse [Unknown]
  - Muscle spasms [Recovering/Resolving]
  - Functional gastrointestinal disorder [Recovering/Resolving]
  - Swelling face [Recovering/Resolving]
  - Nausea [Unknown]
  - Heart rate increased [Unknown]
